FAERS Safety Report 7808950-0 (Version None)
Quarter: 2011Q4

REPORT INFORMATION
  Report Type: 
  Country: None (occurrence: None)
  Receive Date: 20111012
  Receipt Date: 20111003
  Transmission Date: 20120403
  Serious: Yes (Hospitalization)
  Sender: FDA-Public Use
  Company Number: US-BRISTOL-MYERS SQUIBB COMPANY-16125585

PATIENT
  Age: 51 Year
  Sex: Female

DRUGS (4)
  1. KENALOG-40 [Suspect]
     Indication: OSTEOARTHRITIS
     Route: 014
  2. LEVOTHYROXINE SODIUM [Concomitant]
     Indication: THYROID DISORDER
  3. SERTRALINE HYDROCHLORIDE [Concomitant]
  4. TOPIRAMATE [Concomitant]

REACTIONS (4)
  - PARANOIA [None]
  - SUICIDAL IDEATION [None]
  - SUICIDE ATTEMPT [None]
  - AGITATION [None]
